FAERS Safety Report 7212836-2 (Version None)
Quarter: 2011Q1

REPORT INFORMATION
  Report Type: 
  Country: None (occurrence: None)
  Receive Date: 20110106
  Receipt Date: 20101228
  Transmission Date: 20110831
  Serious: Yes (Hospitalization)
  Sender: FDA-Public Use
  Company Number: US-ELI_LILLY_AND_COMPANY-US201008003289

PATIENT
  Sex: Female

DRUGS (10)
  1. FORTEO [Suspect]
     Dosage: 20 UG, 3/W
  2. ASPIRIN [Concomitant]
  3. FORTEO [Suspect]
     Dosage: 20 UG, QOD
     Dates: start: 20100601
  4. DIGOXIN [Concomitant]
  5. DICYCLOMINE [Concomitant]
  6. STOOL SOFTENER [Concomitant]
  7. FORTEO [Suspect]
     Indication: OSTEOPOROSIS
     Dosage: 20 UG, DAILY (1/D)
     Dates: start: 20100302, end: 20100427
  8. FORTEO [Suspect]
     Dosage: 20 UG, 3/W
     Dates: start: 20100611
  9. LIPITOR [Concomitant]
  10. WARFARIN [Concomitant]

REACTIONS (13)
  - PAIN [None]
  - STRESS FRACTURE [None]
  - INFLUENZA LIKE ILLNESS [None]
  - VITAMIN D DECREASED [None]
  - MYALGIA [None]
  - DRUG PRESCRIBING ERROR [None]
  - GAIT DISTURBANCE [None]
  - BLOOD CALCIUM DECREASED [None]
  - ARTHRALGIA [None]
  - MUSCLE SPASMS [None]
  - BACK PAIN [None]
  - PAIN IN EXTREMITY [None]
  - LIP PAIN [None]
